FAERS Safety Report 18993314 (Version 1)
Quarter: 2021Q1

REPORT INFORMATION
  Report Type: Spontaneous
  Country: NO (occurrence: NO)
  Receive Date: 20210310
  Receipt Date: 20210310
  Transmission Date: 20210420
  Serious: Yes (Congenital Anomaly, Other)
  Sender: FDA-Public Use
  Company Number: NO-BAUSCH-BL-2021-006844

PATIENT
  Sex: Male
  Weight: 3.44 kg

DRUGS (2)
  1. PHENOBARBITONE [Suspect]
     Active Substance: PHENOBARBITAL
     Indication: PRODUCT USED FOR UNKNOWN INDICATION
     Route: 064
  2. PRIMIDONE. [Suspect]
     Active Substance: PRIMIDONE
     Indication: PRODUCT USED FOR UNKNOWN INDICATION
     Route: 064

REACTIONS (21)
  - Postnatal growth restriction [Unknown]
  - Cleft palate [Unknown]
  - Irritability [Recovering/Resolving]
  - Poor feeding infant [Recovering/Resolving]
  - Prognathism [Unknown]
  - Delayed fontanelle closure [Unknown]
  - Agitation neonatal [Recovering/Resolving]
  - Microcephaly [Recovering/Resolving]
  - Psychomotor skills impaired [Unknown]
  - Prominent epicanthal folds [Unknown]
  - Hypertelorism of orbit [Unknown]
  - Low set ears [Unknown]
  - Dysmorphism [Unknown]
  - Eyelid ptosis [Unknown]
  - Weight gain poor [Unknown]
  - Maternal exposure during delivery [Unknown]
  - Congenital nose malformation [Unknown]
  - Congenital oral malformation [Unknown]
  - Bone development abnormal [Unknown]
  - Phalangeal hypoplasia [Unknown]
  - Drug withdrawal syndrome [Recovering/Resolving]

NARRATIVE: CASE EVENT DATE: 1972
